FAERS Safety Report 10402979 (Version 3)
Quarter: 2014Q4

REPORT INFORMATION
  Report Type: Spontaneous
  Country: US (occurrence: None)
  Receive Date: 20140820
  Receipt Date: 20141016
  Transmission Date: 20150528
  Serious: Yes (Hospitalization)
  Sender: FDA-Public Use
  Company Number: 2014SGN00831

PATIENT
  Age: 80 Year
  Sex: Female
  Weight: 53.7 kg

DRUGS (21)
  1. RITUXIMAB [Suspect]
     Active Substance: RITUXIMAB
     Indication: DIFFUSE LARGE B-CELL LYMPHOMA
     Dosage: 607 MG, Q21D
     Route: 042
     Dates: start: 20140625, end: 20140625
  2. BACTRIM (SULFAMETHOXAZOLE, TRIMETHOPRIM) [Concomitant]
  3. BRENTUXIMAB VEDOTIN [Suspect]
     Active Substance: BRENTUXIMAB VEDOTIN
     Indication: DIFFUSE LARGE B-CELL LYMPHOMA
     Dosage: 1.2 MG/KG, Q21D
     Route: 042
     Dates: start: 20140626, end: 20140626
  4. COMPAZINE (PROCHLORPERAZINE MALEATE) [Concomitant]
  5. LOVENOX [Concomitant]
     Active Substance: ENOXAPARIN SODIUM
  6. CLOTRIMAZOLE. [Concomitant]
     Active Substance: CLOTRIMAZOLE
  7. LEVAQUIN [Concomitant]
     Active Substance: LEVOFLOXACIN
  8. PREDNISONE. [Suspect]
     Active Substance: PREDNISONE
     Indication: DIFFUSE LARGE B-CELL LYMPHOMA
     Route: 048
     Dates: start: 20140625, end: 20140629
  9. LACTULOSE. [Concomitant]
     Active Substance: LACTULOSE
  10. ZOFRAN (ONDANSETRON HYDROCHLORIDE) [Concomitant]
  11. DILAUDID [Concomitant]
     Active Substance: HYDROMORPHONE HYDROCHLORIDE
  12. VINCRISTINE [Suspect]
     Active Substance: VINCRISTINE
     Indication: DIFFUSE LARGE B-CELL LYMPHOMA
     Dosage: 2 MG, Q21D
     Route: 042
     Dates: start: 20140625, end: 20140625
  13. CYCLOPHOSPHAMIDE. [Suspect]
     Active Substance: CYCLOPHOSPHAMIDE
     Indication: DIFFUSE LARGE B-CELL LYMPHOMA
     Dosage: 1215 MG, Q21D
     Route: 042
     Dates: start: 20140625, end: 20140625
  14. ACYCLOVIR (ACICLOVIR SODIUM) [Concomitant]
  15. COLACE [Concomitant]
     Active Substance: DOCUSATE SODIUM
  16. TYLENOL [Concomitant]
     Active Substance: ACETAMINOPHEN
  17. NEULASTA [Concomitant]
     Active Substance: PEGFILGRASTIM
  18. FOLIC ACID. [Concomitant]
     Active Substance: FOLIC ACID
  19. DOXORUBICIN [Suspect]
     Active Substance: DOXORUBICIN
     Indication: DIFFUSE LARGE B-CELL LYMPHOMA
     Dosage: 81 MG, Q21D
     Route: 042
     Dates: start: 20140625, end: 20140625
  20. ALLOPURINOL. [Concomitant]
     Active Substance: ALLOPURINOL
  21. PRAVASTATIN [Concomitant]
     Active Substance: PRAVASTATIN\PRAVASTATIN SODIUM

REACTIONS (16)
  - Large intestinal ulcer [None]
  - Febrile neutropenia [None]
  - Culture urine positive [None]
  - Vaginal haemorrhage [None]
  - Mass [None]
  - Gastrointestinal haemorrhage [None]
  - Endometrial disorder [None]
  - Colitis [None]
  - Malnutrition [None]
  - Rectal haemorrhage [None]
  - Cystocele [None]
  - Hypophagia [None]
  - Escherichia infection [None]
  - Uterine disorder [None]
  - Peripheral swelling [None]
  - Ileus [None]

NARRATIVE: CASE EVENT DATE: 20140704
